FAERS Safety Report 19705617 (Version 3)
Quarter: 2025Q4

REPORT INFORMATION
  Report Type: Spontaneous
  Country: US (occurrence: US)
  Receive Date: 20210817
  Receipt Date: 20251223
  Transmission Date: 20260118
  Serious: Yes (Other)
  Sender: AUROBINDO
  Company Number: US-GLAXOSMITHKLINE-US2021GSK151200

PATIENT
  Age: 14 Year
  Sex: Female

DRUGS (2)
  1. LORAZEPAM [Suspect]
     Active Substance: LORAZEPAM
     Indication: Prophylaxis
     Dosage: UNK
     Route: 065
  2. LORAZEPAM [Suspect]
     Active Substance: LORAZEPAM
     Dosage: 7.5 MILLIGRAM (OVER 24 HOURS )
     Route: 065

REACTIONS (2)
  - Agitation [Recovered/Resolved]
  - Paradoxical drug reaction [Recovered/Resolved]
